FAERS Safety Report 22964389 (Version 2)
Quarter: 2024Q1

REPORT INFORMATION
  Report Type: Spontaneous
  Country: US (occurrence: None)
  Receive Date: 20230921
  Receipt Date: 20240119
  Transmission Date: 20240410
  Serious: Yes (Hospitalization)
  Sender: FDA-Public Use
  Company Number: US-ROCHE-3425465

PATIENT
  Sex: Male
  Weight: 102.6 kg

DRUGS (1)
  1. HEMLIBRA [Suspect]
     Active Substance: EMICIZUMAB-KXWH
     Indication: Factor VIII deficiency
     Dosage: STRENGTH 105 MG /0.7 ML
     Route: 058
     Dates: start: 202207

REACTIONS (4)
  - Gastric infection [Unknown]
  - Sepsis [Unknown]
  - Gastrointestinal disorder [Unknown]
  - Weight decreased [Unknown]
